FAERS Safety Report 19767039 (Version 1)
Quarter: 2021Q3

REPORT INFORMATION
  Report Type: Spontaneous
  Country: US (occurrence: US)
  Receive Date: 20210831
  Receipt Date: 20210831
  Transmission Date: 20211014
  Serious: Yes (Other)
  Sender: FDA-Public Use
  Company Number: US-GLAXOSMITHKLINE-US2021GSK183718

PATIENT
  Sex: Male

DRUGS (10)
  1. RANITIDINE. [Suspect]
     Active Substance: RANITIDINE
     Indication: MYOCARDIAL INFARCTION
     Dosage: 300 MG, QD
     Dates: start: 200701, end: 201901
  2. RANITIDINE CAPSULE [Suspect]
     Active Substance: RANITIDINE
     Indication: MYOCARDIAL INFARCTION
     Dosage: 150 MG BOTH
     Dates: start: 200701, end: 201901
  3. RANITIDINE. [Suspect]
     Active Substance: RANITIDINE
     Dosage: 300 MG, QD
     Dates: start: 200701, end: 201901
  4. RANITIDINE. [Suspect]
     Active Substance: RANITIDINE
     Dosage: UNK
  5. RANITIDINE CAPSULE [Suspect]
     Active Substance: RANITIDINE
     Dosage: 300 MG, QD
     Dates: start: 200701, end: 201901
  6. ZANTAC [Suspect]
     Active Substance: RANITIDINE HYDROCHLORIDE
     Dosage: 300 MG, QD
     Dates: start: 200701, end: 201901
  7. ZANTAC [Suspect]
     Active Substance: RANITIDINE HYDROCHLORIDE
     Indication: MYOCARDIAL INFARCTION
     Dosage: 150 MG BOTH
     Dates: start: 200701, end: 201901
  8. ZANTAC [Suspect]
     Active Substance: RANITIDINE HYDROCHLORIDE
     Dosage: 300 MG, QD
     Dates: start: 200701, end: 201901
  9. ZANTAC [Suspect]
     Active Substance: RANITIDINE HYDROCHLORIDE
     Indication: MYOCARDIAL INFARCTION
     Dosage: 150 MG BOTH
     Dates: start: 200701, end: 201901
  10. RANITIDINE. [Suspect]
     Active Substance: RANITIDINE
     Indication: MYOCARDIAL INFARCTION
     Dosage: 150 MG PRESCRIPTION
     Dates: start: 200701, end: 201901

REACTIONS (1)
  - Pancreatic carcinoma [Unknown]
